FAERS Safety Report 18319761 (Version 2)
Quarter: 2020Q4

REPORT INFORMATION
  Report Type: Spontaneous
  Country: CO (occurrence: CO)
  Receive Date: 20200928
  Receipt Date: 20201119
  Transmission Date: 20210113
  Serious: Yes (Other)
  Sender: FDA-Public Use
  Company Number: CO-AMGEN-COLSP2020150270

PATIENT
  Age: 39 Year
  Sex: Female
  Weight: 67 kg

DRUGS (10)
  1. ONDANSETRON [Concomitant]
     Active Substance: ONDANSETRON
     Indication: GLIOMA
     Dosage: 16 MILLIGRAM
     Route: 042
     Dates: start: 20191206
  2. MVASI [Suspect]
     Active Substance: BEVACIZUMAB-AWWB
     Indication: GLIOMA
     Dosage: 100 MILLIGRAM
     Route: 042
     Dates: start: 20191206
  3. DEXAMETHASONE PHOSPHATE [Concomitant]
     Active Substance: DEXAMETHASONE PHOSPHATE
     Indication: GLIOMA
     Dosage: 16 MILLIGRAM
     Route: 042
     Dates: start: 20191206
  4. MVASI [Suspect]
     Active Substance: BEVACIZUMAB-AWWB
     Dosage: 670 MILLIGRAM
     Route: 042
  5. IRINOTECAN [Concomitant]
     Active Substance: IRINOTECAN
     Indication: GLIOMA
     Dosage: 218.75 MILLIGRAM, FOR TWO HOURS
     Route: 042
     Dates: start: 20191206
  6. MVASI [Suspect]
     Active Substance: BEVACIZUMAB-AWWB
     Dosage: 636.5 MILLIGRAM
     Route: 042
     Dates: start: 20200917
  7. ATROPINE SULFATE. [Concomitant]
     Active Substance: ATROPINE SULFATE
     Indication: GLIOMA
     Dosage: 1 MILLIGRAM PER MILLILITRE
     Route: 030
     Dates: start: 20191206
  8. CARBAMAZEPINE. [Concomitant]
     Active Substance: CARBAMAZEPINE
     Indication: SEIZURE
     Dosage: 200 MILLIGRAM, Q8H
     Route: 048
     Dates: start: 20200902
  9. FOSAPREPITANT [Concomitant]
     Active Substance: FOSAPREPITANT
     Indication: GLIOMA
     Dosage: 150 MILLIGRAM
     Route: 042
     Dates: start: 20191206
  10. LEVETIRACETAM. [Concomitant]
     Active Substance: LEVETIRACETAM
     Indication: SEIZURE
     Dosage: 500 MILLIGRAM, Q8H
     Route: 048
     Dates: start: 20200917

REACTIONS (2)
  - Off label use [Not Recovered/Not Resolved]
  - Seizure [Recovered/Resolved]

NARRATIVE: CASE EVENT DATE: 20191206
